FAERS Safety Report 5269423-5 (Version None)
Quarter: 2007Q1

REPORT INFORMATION
  Report Type: 
  Country: None (occurrence: None)
  Receive Date: 20070320
  Receipt Date: 20070315
  Transmission Date: 20070707
  Serious: Yes (Other)
  Sender: FDA-Public Use
  Company Number: US-RB-005555-07

PATIENT
  Sex: Female
  Weight: 56.25 kg

DRUGS (2)
  1. SUBOXONE [Suspect]
     Route: 060
     Dates: start: 20060301
  2. DOXEPIN HCL [Concomitant]
     Indication: INSOMNIA
     Route: 048
     Dates: start: 20060301

REACTIONS (1)
  - ABORTION SPONTANEOUS [None]
